FAERS Safety Report 4579464-9 (Version None)
Quarter: 2005Q1

REPORT INFORMATION
  Report Type: 
  Country: None (occurrence: None)
  Receive Date: 20050209
  Receipt Date: 20050120
  Transmission Date: 20050727
  Serious: Yes (Life-Threatening, Hospitalization)
  Sender: FDA-Public Use
  Company Number: JP_041004698

PATIENT
  Age: 68 Year
  Sex: Male

DRUGS (7)
  1. ZYPREXA [Suspect]
     Indication: MENTAL DISORDER
     Dosage: 10 MG DAY
     Dates: start: 20040518, end: 20040729
  2. DEPAKENE [Concomitant]
  3. LIMAS (LITHIUM CARBONATE) [Concomitant]
  4. FUROSEMIDE [Concomitant]
  5. MAGNESIUM OXIDE [Concomitant]
  6. LENDORM [Concomitant]
  7. MUCODYNE (CARBOCISTEINE) [Concomitant]

REACTIONS (12)
  - ALANINE AMINOTRANSFERASE INCREASED [None]
  - ASPARTATE AMINOTRANSFERASE INCREASED [None]
  - BLOOD LACTATE DEHYDROGENASE INCREASED [None]
  - C-REACTIVE PROTEIN INCREASED [None]
  - ERYTHEMA [None]
  - FALSE POSITIVE LABORATORY RESULT [None]
  - HYPERSENSITIVITY [None]
  - LYMPHADENOPATHY [None]
  - PHOTOSENSITIVITY REACTION [None]
  - RASH [None]
  - RESTLESSNESS [None]
  - WHITE BLOOD CELL COUNT INCREASED [None]
